FAERS Safety Report 6219158-7 (Version None)
Quarter: 2009Q2

REPORT INFORMATION
  Report Type: 
  Country: None (occurrence: None)
  Receive Date: 20090605
  Receipt Date: 20090605
  Transmission Date: 20091009
  Serious: Yes (Hospitalization)
  Sender: FDA-Public Use
  Company Number: None

PATIENT
  Sex: Male
  Weight: 99.3 kg

DRUGS (16)
  1. TEMOZOLOMIDE [Suspect]
     Dosage: 445MG  MONTHLY PO
     Route: 048
     Dates: start: 20090311, end: 20090510
  2. TEMOZOLOMIDE [Suspect]
  3. TEMOZOLOMIDE [Suspect]
  4. TEMOZOLOMIDE [Suspect]
  5. BACTRIM DS [Concomitant]
  6. COLACE [Concomitant]
  7. COLCHICINE [Concomitant]
  8. FERROUS SULFATE TAB [Concomitant]
  9. JANTOVEN [Concomitant]
  10. KEPPRA [Concomitant]
  11. METOPROLOL SUCCINATE [Concomitant]
  12. OMEPRAZOLE [Concomitant]
  13. SENNOSIDES [Concomitant]
  14. DOCUSATE SODIUM [Concomitant]
  15. TYLENOL (CAPLET) [Concomitant]
  16. ZOFRAN [Concomitant]

REACTIONS (2)
  - CONVULSION [None]
  - POSTICTAL STATE [None]
